FAERS Safety Report 23874923 (Version 1)
Quarter: 2024Q2

REPORT INFORMATION
  Report Type: Spontaneous
  Country: PL (occurrence: PL)
  Receive Date: 20240520
  Receipt Date: 20240520
  Transmission Date: 20240716
  Serious: Yes (Hospitalization, Other)
  Sender: FDA-Public Use
  Company Number: PL-002147023-NVSC2024PL044846

PATIENT
  Age: 32 Year
  Sex: Female
  Weight: 61 kg

DRUGS (6)
  1. KESIMPTA [Suspect]
     Active Substance: OFATUMUMAB
     Indication: Multiple sclerosis
     Dosage: 20 MG, QW
     Route: 058
     Dates: start: 20231218, end: 20240115
  2. METHYLPREDNISOLONE [Concomitant]
     Active Substance: METHYLPREDNISOLONE
     Indication: Multiple sclerosis
     Dosage: 1 G, QD
     Route: 042
  3. ENOXAPARIN SODIUM [Concomitant]
     Active Substance: ENOXAPARIN SODIUM
     Indication: Meniscus injury
     Dosage: 40 MG (AMPOULE)
     Route: 058
  4. CYCLO 3 FORT [Concomitant]
     Active Substance: ASCORBIC ACID\HESPERIDIN METHYLCHALCONE\RUSCUS ACULEATUS ROOT
     Indication: Meniscus injury
     Dosage: UNK, BID
     Route: 048
  5. DICLOFENAC SODIUM [Concomitant]
     Active Substance: DICLOFENAC\DICLOFENAC SODIUM
     Indication: Meniscus injury
     Dosage: 150 MG, QD (AD HOC)
     Route: 048
  6. OMEPRAZOLE SODIUM [Concomitant]
     Active Substance: OMEPRAZOLE SODIUM
     Indication: Gastrointestinal disorder therapy
     Dosage: 20 MG, QD
     Route: 048

REACTIONS (7)
  - Liver injury [Recovered/Resolved]
  - Meniscus injury [Unknown]
  - Alanine aminotransferase abnormal [Recovering/Resolving]
  - Aspartate aminotransferase abnormal [Recovering/Resolving]
  - Blood bilirubin abnormal [Recovered/Resolved]
  - Gastric haemorrhage [Unknown]
  - Glucose tolerance test abnormal [Recovering/Resolving]

NARRATIVE: CASE EVENT DATE: 20240108
